FAERS Safety Report 8619875-5 (Version None)
Quarter: 2012Q3

REPORT INFORMATION
  Report Type: 
  Country: None (occurrence: None)
  Receive Date: 20120824
  Receipt Date: 20120822
  Transmission Date: 20120928
  Serious: No
  Sender: FDA-Public Use
  Company Number: US-PFIZER INC-2012206529

PATIENT
  Sex: Female

DRUGS (2)
  1. FLUCONAZOLE [Suspect]
     Indication: POSTOPERATIVE CARE
     Dosage: 50 MG, ONCE A DAY
  2. FLUCONAZOLE [Suspect]
     Dosage: 200 MG, ONCE A DAY

REACTIONS (4)
  - LIP HAEMORRHAGE [None]
  - LIP DRY [None]
  - LIP EXFOLIATION [None]
  - CHAPPED LIPS [None]
